FAERS Safety Report 6963480-3 (Version None)
Quarter: 2010Q3

REPORT INFORMATION
  Report Type: 
  Country: None (occurrence: None)
  Receive Date: 20100902
  Receipt Date: 20100827
  Transmission Date: 20110219
  Serious: Yes (Hospitalization)
  Sender: FDA-Public Use
  Company Number: BE-MPIJNJ-2010-03731

PATIENT

DRUGS (2)
  1. VELCADE [Suspect]
     Indication: MULTIPLE MYELOMA
     Dosage: UNK
     Route: 042
     Dates: end: 20090427
  2. VORINOSTAT [Suspect]
     Indication: MULTIPLE MYELOMA
     Dosage: 400 MG, CYCLIC
     Route: 048
     Dates: end: 20090501

REACTIONS (1)
  - HYPERVISCOSITY SYNDROME [None]
